FAERS Safety Report 10400019 (Version 2)
Quarter: 2014Q3

REPORT INFORMATION
  Report Type: Report from Study
  Country: NL (occurrence: NL)
  Receive Date: 20140821
  Receipt Date: 20140903
  Transmission Date: 20150326
  Serious: Yes (Other)
  Sender: FDA-Public Use
  Company Number: NL-BAYER-2014-121987

PATIENT
  Age: 55 Year
  Sex: Female
  Weight: 56 kg

DRUGS (1)
  1. GADOBUTROL [Suspect]
     Active Substance: GADOBUTROL
     Dosage: UNK
     Dates: start: 20140116, end: 20140116

REACTIONS (3)
  - Biliary colic [None]
  - Back pain [None]
  - Renal colic [None]

NARRATIVE: CASE EVENT DATE: 2014
